FAERS Safety Report 8791141 (Version 1)
Quarter: 2012Q4

REPORT INFORMATION
  Report Type: Spontaneous
  Country: IT (occurrence: None)
  Receive Date: 20120912
  Receipt Date: 20120912
  Transmission Date: 20130627
  Serious: Yes (Hospitalization)
  Sender: FDA-Public Use
  Company Number: AUR-APL-2012-03878

PATIENT
  Sex: Female

DRUGS (1)
  1. RAMIPRIL [Suspect]

REACTIONS (1)
  - Renal failure chronic [None]
